FAERS Safety Report 26110547 (Version 1)
Quarter: 2025Q4

REPORT INFORMATION
  Report Type: Spontaneous
  Country: US (occurrence: US)
  Receive Date: 20251202
  Receipt Date: 20251202
  Transmission Date: 20260117
  Serious: No
  Sender: TOLMAR
  Company Number: US-Tolmar-TLM-2025-08885

PATIENT
  Sex: Female

DRUGS (2)
  1. FENSOLVI [Suspect]
     Active Substance: LEUPROLIDE ACETATE
     Indication: Product used for unknown indication
     Dosage: SYRINGE A: 15309AUF EXP: 10-2026?SYRINGE B: 15309BUF EXP: 09-2026?NDC: 62935-163-60?SN#: 81134372928
  2. DEVICE [Suspect]
     Active Substance: DEVICE
     Indication: Product used for unknown indication
     Dosage: SYRINGE A: 15309AUF EXP: 10-2026?SYRINGE B: 15309BUF EXP: 09-2026?NDC: 62935-163-60?SN#: 81134372928

REACTIONS (1)
  - Occupational exposure to product [Unknown]
